FAERS Safety Report 5713536-8 (Version None)
Quarter: 2008Q2

REPORT INFORMATION
  Report Type: 
  Country: None (occurrence: None)
  Receive Date: 20080422
  Receipt Date: 20080410
  Transmission Date: 20081010
  Serious: Yes (Other)
  Sender: FDA-Public Use
  Company Number: US-PFIZER INC-2008033201

PATIENT
  Sex: Female
  Weight: 61.2 kg

DRUGS (11)
  1. CHANTIX [Suspect]
     Indication: SMOKING CESSATION THERAPY
     Route: 048
  2. FENTANYL CITRATE [Concomitant]
  3. SYNTHROID [Concomitant]
  4. DEXTROSTAT [Concomitant]
  5. ALLEGRA [Concomitant]
  6. FLONASE [Concomitant]
  7. FISH OIL [Concomitant]
  8. LORTAB [Concomitant]
  9. TYLENOL EXTRA-STRENGTH [Concomitant]
  10. TYLENOL [Concomitant]
  11. AMBIEN [Concomitant]

REACTIONS (1)
  - GASTROENTERITIS [None]
